FAERS Safety Report 5275224-4 (Version None)
Quarter: 2007Q1

REPORT INFORMATION
  Report Type: 
  Country: None (occurrence: None)
  Receive Date: 20070320
  Receipt Date: 20070308
  Transmission Date: 20070707
  Serious: Yes (Hospitalization)
  Sender: FDA-Public Use
  Company Number: 2007-155632-NL

PATIENT
  Age: 78 Year
  Sex: Female

DRUGS (6)
  1. DANAPAROID SODIUM [Suspect]
     Indication: HEPARIN-INDUCED THROMBOCYTOPENIA
     Dosage: SUBCUTANEOUS
     Route: 058
     Dates: start: 20070130, end: 20070131
  2. TRIMEBUTINE MALEATE [Concomitant]
  3. ACETAMINOPHEN [Concomitant]
  4. MORPHINE SULFATE [Concomitant]
  5. MACROGOL [Concomitant]
  6. MORPHINE SULFATE [Concomitant]

REACTIONS (4)
  - DEEP VEIN THROMBOSIS [None]
  - DISEASE RECURRENCE [None]
  - HEPARIN-INDUCED THROMBOCYTOPENIA [None]
  - PULMONARY EMBOLISM [None]
